FAERS Safety Report 8816112 (Version 1)
Quarter: 2012Q4

REPORT INFORMATION
  Report Type: 
  Country: US (occurrence: US)
  Receive Date: 20120929
  Receipt Date: 20120929
  Transmission Date: 20130627
  Serious: Yes (Death)
  Sender: FDA-Public Use
  Company Number: US-B.I. PHARMACEUTICALS,INC./RIDGEFIELD-2012-EU-04852GD

PATIENT
  Age: 2 Year
  Sex: Female

DRUGS (1)
  1. CLONIDINE [Suspect]

REACTIONS (6)
  - Accidental exposure to product by child [Fatal]
  - Labile blood pressure [Fatal]
  - Respiratory failure [Fatal]
  - Pulmonary oedema [Fatal]
  - Urine output decreased [Fatal]
  - Acidosis [Fatal]
